FAERS Safety Report 5069988-2 (Version None)
Quarter: 2006Q3

REPORT INFORMATION
  Report Type: 
  Country: None (occurrence: None)
  Receive Date: 20060714
  Receipt Date: 20060501
  Transmission Date: 20061208
  Serious: No
  Sender: FDA-Public Use
  Company Number: 2006SP001882

PATIENT
  Age: 31 Year
  Sex: Male
  Weight: 88.4514 kg

DRUGS (1)
  1. LUNESTA [Suspect]
     Indication: INSOMNIA
     Dosage: 3 MG, HS; ORAL
     Route: 048
     Dates: start: 20060401, end: 20060401

REACTIONS (2)
  - ABDOMINAL PAIN [None]
  - DIARRHOEA [None]
